FAERS Safety Report 10543280 (Version 1)
Quarter: 2014Q4

REPORT INFORMATION
  Report Type: Spontaneous
  Country: US (occurrence: None)
  Receive Date: 20141024
  Receipt Date: 20141024
  Transmission Date: 20150529
  Serious: No
  Sender: FDA-Public Use
  Company Number: None

PATIENT
  Age: 44 Year
  Sex: Female

DRUGS (1)
  1. HUMIRA [Suspect]
     Active Substance: ADALIMUMAB
     Indication: TAKAYASU^S ARTERITIS
     Route: 058
     Dates: start: 20140520

REACTIONS (5)
  - Hot flush [None]
  - Muscle spasms [None]
  - Hypoaesthesia [None]
  - Constipation [None]
  - Diarrhoea [None]
